FAERS Safety Report 9657764 (Version 2)
Quarter: 2013Q4

REPORT INFORMATION
  Report Type: Spontaneous
  Country: US (occurrence: US)
  Receive Date: 20131030
  Receipt Date: 20131118
  Transmission Date: 20140711
  Serious: Yes (Other)
  Sender: FDA-Public Use
  Company Number: US-TEVA-441265USA

PATIENT
  Age: 27 Year
  Sex: Female
  Weight: 82.63 kg

DRUGS (2)
  1. PARAGARD 380A [Suspect]
     Indication: CONTRACEPTION
     Route: 015
     Dates: start: 20121210
  2. CELEXA [Concomitant]
     Indication: OBSESSIVE-COMPULSIVE DISORDER
     Dosage: 41 MILLIGRAM DAILY;
     Route: 048

REACTIONS (2)
  - Device dislocation [Recovering/Resolving]
  - Vaginal haemorrhage [Not Recovered/Not Resolved]
